FAERS Safety Report 5623965-9 (Version None)
Quarter: 2008Q1

REPORT INFORMATION
  Report Type: 
  Country: None (occurrence: None)
  Receive Date: 20080201
  Receipt Date: 20080111
  Transmission Date: 20080703
  Serious: Yes (Hospitalization)
  Sender: FDA-Public Use
  Company Number: THYM-1000273

PATIENT
  Age: 54 Year
  Sex: Male
  Weight: 81 kg

DRUGS (19)
  1. THYMOGLOBULIN [Suspect]
     Indication: KIDNEY TRANSPLANT REJECTION
     Dosage: 125 MG, QD X 7D, INTRAVENOUS
     Route: 042
     Dates: start: 20071125, end: 20071201
  2. PREDNISOLONE ACETATE [Concomitant]
  3. CELLCEPT [Concomitant]
  4. TACROLIMUS [Concomitant]
  5. BACTRIM [Concomitant]
  6. MYCELEX [Concomitant]
  7. VALCYTE [Concomitant]
  8. PROTONIX [Concomitant]
  9. STRESSTABS (VITAMINS NOS) [Concomitant]
  10. POTASSIUM PHOSPHATE DIBASIC (POTASSIUM PHOSPHATE DIBASIC) [Concomitant]
  11. ARANESP [Concomitant]
  12. HYDROMORPHONE HCL [Concomitant]
  13. ALPRAZOLAM [Concomitant]
  14. METOPROLOL TARTRATE [Concomitant]
  15. MINOXIDIL [Concomitant]
  16. NIFEDIPINE [Concomitant]
  17. SALMETEROL (SALMETEROL XINAFOATE) [Concomitant]
  18. TAMSULOSIN HCL [Concomitant]
  19. ALENDRONATE SODIUM [Concomitant]

REACTIONS (2)
  - CATHETER RELATED INFECTION [None]
  - SERUM SICKNESS [None]
